FAERS Safety Report 5258470-5 (Version None)
Quarter: 2007Q1

REPORT INFORMATION
  Report Type: 
  Country: None (occurrence: None)
  Receive Date: 20070308
  Receipt Date: 20070301
  Transmission Date: 20070707
  Serious: Yes (Other)
  Sender: FDA-Public Use
  Company Number: SG-BAYER-200711254GDS

PATIENT
  Age: 34 Year
  Sex: Male

DRUGS (1)
  1. CIPROFLOXACIN [Suspect]
     Indication: HAEMATURIA
     Route: 048

REACTIONS (1)
  - TUBERCULOSIS [None]
